FAERS Safety Report 8766759 (Version 1)
Quarter: 2012Q4

REPORT INFORMATION
  Report Type: 
  Country: US (occurrence: US)
  Receive Date: 20120904
  Receipt Date: 20120904
  Transmission Date: 20130627
  Serious: No
  Sender: FDA-Public Use
  Company Number: US-TEVA-356670USA

PATIENT
  Age: 51 Year
  Sex: Female

DRUGS (7)
  1. NUVIGIL [Suspect]
  2. LYRICA [Concomitant]
  3. REQUIP [Concomitant]
  4. ARMOUR THYROID [Concomitant]
  5. CYMBALTA [Concomitant]
  6. CELEBREX [Concomitant]
  7. VERAPAMIL [Concomitant]

REACTIONS (1)
  - Oedema peripheral [Unknown]
